FAERS Safety Report 10469249 (Version 1)
Quarter: 2014Q3

REPORT INFORMATION
  Report Type: Spontaneous
  Country: US (occurrence: None)
  Receive Date: 20140922
  Receipt Date: 20140922
  Transmission Date: 20150326
  Serious: Yes (Life-Threatening)
  Sender: FDA-Public Use
  Company Number: None

PATIENT
  Age: 9 Year
  Sex: Male
  Weight: 29.48 kg

DRUGS (1)
  1. HYLAD^S 4KIDS CALM AND RESTFUL HYLANDS [Suspect]
     Active Substance: HOMEOPATHICS
     Indication: SLEEP DISORDER THERAPY
     Dates: start: 20140917

REACTIONS (14)
  - Vomiting [None]
  - Gait disturbance [None]
  - Disturbance in attention [None]
  - Cough [None]
  - Dry mouth [None]
  - Hyperhidrosis [None]
  - Paraesthesia [None]
  - Dizziness [None]
  - Vision blurred [None]
  - Dyspnoea [None]
  - Somnolence [None]
  - Limb discomfort [None]
  - Palpitations [None]
  - Pollakiuria [None]

NARRATIVE: CASE EVENT DATE: 20140917
